FAERS Safety Report 8593143 (Version 4)
Quarter: 2013Q4

REPORT INFORMATION
  Report Type: Spontaneous
  Country: US (occurrence: US)
  Receive Date: 20120604
  Receipt Date: 20131129
  Transmission Date: 20140711
  Serious: Yes (Disabling, Other)
  Sender: FDA-Public Use
  Company Number: US-ASTRAZENECA-2012SE34883

PATIENT
  Age: 54 Year
  Sex: Female

DRUGS (9)
  1. NEXIUM [Suspect]
     Dosage: 2 TIMES A DAY
     Route: 048
  2. NEXIUM [Suspect]
     Route: 048
     Dates: start: 20110613
  3. LASIX [Concomitant]
     Indication: FLUID RETENTION
     Route: 048
  4. LORATADINE [Concomitant]
     Indication: HYPERSENSITIVITY
     Route: 048
  5. LORTAB [Concomitant]
     Indication: PAIN
     Dosage: 10-500 MG 1 TABLET EVERY 5 HOURS
     Route: 048
  6. MICARDIS HCT [Concomitant]
     Dosage: 80-25  MG 1 TABLET 1 TIMES PER DAY
     Route: 048
  7. PAROXETINE HCL [Concomitant]
     Indication: DEPRESSION
     Route: 048
  8. PAROXETINE HCL [Concomitant]
     Indication: ANXIETY
     Route: 048
  9. NITROGLYCERIN [Concomitant]
     Indication: CHEST PAIN

REACTIONS (7)
  - Neoplasm malignant [Unknown]
  - Movement disorder [Unknown]
  - Osteoporosis [Unknown]
  - Multiple fractures [Unknown]
  - Back pain [Unknown]
  - Bone pain [Unknown]
  - Depression [Unknown]
